FAERS Safety Report 8490926-4 (Version None)
Quarter: 2012Q2

REPORT INFORMATION
  Report Type: 
  Country: None (occurrence: None)
  Receive Date: 20120629
  Receipt Date: 20120629
  Transmission Date: 20120825
  Serious: Yes (Other)
  Sender: FDA-Public Use
  Company Number: None

PATIENT
  Age: 67 Year
  Sex: Female

DRUGS (1)
  1. FORTEO [Suspect]
     Indication: ILL-DEFINED DISORDER
     Dosage: 20 MCG DAILY SUB-Q
     Route: 058
     Dates: start: 20110701, end: 20120622

REACTIONS (2)
  - PAIN IN EXTREMITY [None]
  - MUSCLE SPASMS [None]
